FAERS Safety Report 5154968-9 (Version None)
Quarter: 2006Q4

REPORT INFORMATION
  Report Type: 
  Country: None (occurrence: None)
  Receive Date: 20061121
  Receipt Date: 20061110
  Transmission Date: 20070319
  Serious: Yes (Hospitalization)
  Sender: FDA-Public Use
  Company Number: US-ELI_LILLY_AND_COMPANY-US200611002159

PATIENT
  Sex: Female

DRUGS (1)
  1. HUMATROPE [Suspect]
     Dates: start: 20040101

REACTIONS (2)
  - BLOOD GLUCOSE DECREASED [None]
  - PHARMACEUTICAL PRODUCT COMPLAINT [None]
